FAERS Safety Report 19192239 (Version 2)
Quarter: 2021Q2

REPORT INFORMATION
  Report Type: Spontaneous
  Country: IT (occurrence: IT)
  Receive Date: 20210429
  Receipt Date: 20210504
  Transmission Date: 20210717
  Serious: Yes (Hospitalization)
  Sender: FDA-Public Use
  Company Number: IT-ROCHE-2819800

PATIENT
  Sex: Male

DRUGS (1)
  1. EMICIZUMAB. [Suspect]
     Active Substance: EMICIZUMAB
     Indication: FACTOR VIII DEFICIENCY
     Route: 065

REACTIONS (1)
  - Pancreatic carcinoma [Recovering/Resolving]
